FAERS Safety Report 8956702 (Version 1)
Quarter: 2012Q4

REPORT INFORMATION
  Report Type: Spontaneous
  Country: US (occurrence: None)
  Receive Date: 20121211
  Receipt Date: 20121211
  Transmission Date: 20130627
  Serious: Yes (Death)
  Sender: FDA-Public Use
  Company Number: None

PATIENT
  Age: 63 Year
  Sex: Male
  Weight: 90.72 kg

DRUGS (1)
  1. METHYLPREDNISOLONE [Suspect]
     Indication: NECK PAIN
     Dosage: 3 injections
     Dates: start: 20121022, end: 20121113

REACTIONS (8)
  - Vision blurred [None]
  - Nausea [None]
  - Dizziness [None]
  - Feeling abnormal [None]
  - Pain [None]
  - Disease recurrence [None]
  - Chest pain [None]
  - Arrhythmia [None]
